FAERS Safety Report 4738626-8 (Version None)
Quarter: 2005Q3

REPORT INFORMATION
  Report Type: 
  Country: None (occurrence: None)
  Receive Date: 20050803
  Receipt Date: 20050711
  Transmission Date: 20060218
  Serious: Yes (Other)
  Sender: FDA-Public Use
  Company Number: EWC050744752

PATIENT
  Age: 1 Day
  Sex: Female
  Weight: 3 kg

DRUGS (6)
  1. OLANZAPINE [Suspect]
     Dosage: 30 MG/1 DAY
     Dates: start: 20041003, end: 20050306
  2. LEVOTHYROXINE SODIUM [Concomitant]
  3. CIPRALEX (ESCITALOPRAM OXALATE) [Concomitant]
  4. LITHIUM [Concomitant]
  5. EFECTIN (VENLAFAXINE HYDROCHLORIDE) [Concomitant]
  6. CITALOPRAM HYDROBROMIDE [Concomitant]

REACTIONS (3)
  - APGAR SCORE LOW [None]
  - DRUG EXPOSURE DURING PREGNANCY [None]
  - PREMATURE LABOUR [None]
